FAERS Safety Report 9685533 (Version 1)
Quarter: 2013Q4

REPORT INFORMATION
  Report Type: Spontaneous
  Country: GB (occurrence: GB)
  Receive Date: 20131113
  Receipt Date: 20131113
  Transmission Date: 20140711
  Serious: Yes (Other)
  Sender: FDA-Public Use
  Company Number: GB-BRISTOL-MYERS SQUIBB COMPANY-19806355

PATIENT
  Sex: Female

DRUGS (1)
  1. GLUCOPHAGE TABS [Suspect]
     Indication: DIABETES MELLITUS
     Dosage: GLUCOPHAQE IR (IMMEDIATE RELEASE) AND GLUCOPHAGE SR (SUSTAINED RELEASE)
     Dates: start: 2010

REACTIONS (8)
  - Cerebrovascular accident [Unknown]
  - Aphagia [Unknown]
  - Thinking abnormal [Unknown]
  - Nervous system disorder [Unknown]
  - Mouth ulceration [Unknown]
  - Dizziness [Unknown]
  - Muscle spasms [Unknown]
  - Abdominal pain upper [Unknown]
